FAERS Safety Report 9296664 (Version 1)
Quarter: 2013Q2

REPORT INFORMATION
  Report Type: Spontaneous
  Country: US (occurrence: None)
  Receive Date: 20130515
  Receipt Date: 20130515
  Transmission Date: 20140414
  Serious: Yes (Hospitalization)
  Sender: FDA-Public Use
  Company Number: 1707573

PATIENT
  Age: 54 Year
  Sex: Female

DRUGS (5)
  1. MORPHINE SULFATE [Suspect]
     Indication: PAIN
  2. MORPHINE SULFATE [Suspect]
     Indication: KNEE ARTHROPLASTY
  3. GLATIRAMER ACETATE [Suspect]
     Indication: MULTIPLE SCLEROSIS
     Dates: start: 20130214
  4. OXYCODONE [Suspect]
     Indication: PAIN
  5. OXYCODONE [Suspect]
     Indication: KNEE ARTHROPLASTY

REACTIONS (2)
  - Urinary tract infection [None]
  - Dehydration [None]
